FAERS Safety Report 16591944 (Version 1)
Quarter: 2019Q3

REPORT INFORMATION
  Report Type: Spontaneous
  Country: VN (occurrence: VN)
  Receive Date: 20190718
  Receipt Date: 20190718
  Transmission Date: 20191004
  Serious: Yes (Hospitalization, Other)
  Sender: FDA-Public Use
  Company Number: VN-009507513-1907VNM008773

PATIENT
  Age: 44 Year
  Sex: Male
  Weight: 50 kg

DRUGS (6)
  1. TIENAM [Suspect]
     Active Substance: CILASTATIN SODIUM\IMIPENEM
     Indication: SEPSIS
  2. TIENAM [Suspect]
     Active Substance: CILASTATIN SODIUM\IMIPENEM
     Indication: PANCREATITIS ACUTE
     Dosage: 1 GRAM, BID
     Route: 042
     Dates: start: 20190711, end: 20190711
  3. METRONIDAZOLE. [Concomitant]
     Active Substance: METRONIDAZOLE
     Indication: PANCREATITIS ACUTE
     Dosage: 500 MILLIGRAM (4 BOTTLES PER DAY)
     Route: 042
     Dates: start: 20190709, end: 20190711
  4. METRONIDAZOLE. [Concomitant]
     Active Substance: METRONIDAZOLE
     Indication: SEPSIS
  5. CEFTRIAXONE. [Concomitant]
     Active Substance: CEFTRIAXONE
     Indication: SEPSIS
  6. CEFTRIAXONE. [Concomitant]
     Active Substance: CEFTRIAXONE
     Indication: PANCREATITIS ACUTE
     Dosage: 2 GRAM, QD
     Dates: start: 20190709, end: 20190711

REACTIONS (1)
  - Psychotic symptom [Recovered/Resolved]

NARRATIVE: CASE EVENT DATE: 20190711
